FAERS Safety Report 19838706 (Version 3)
Quarter: 2022Q3

REPORT INFORMATION
  Report Type: Other
  Country: JP (occurrence: None)
  Receive Date: 20210916
  Receipt Date: 20220919
  Transmission Date: 20221026
  Serious: Yes (Hospitalization, Other)
  Sender: FDA-Public Use
  Company Number: JP-ROCHE-2911090

PATIENT
  Age: 73 Year
  Sex: Male
  Weight: 53 kg

DRUGS (4)
  1. RITUXAN [Suspect]
     Active Substance: RITUXIMAB
     Indication: Diffuse large B-cell lymphoma
     Route: 041
     Dates: start: 20210818, end: 20210818
  2. BENDAMUSTINE HYDROCHLORIDE [Suspect]
     Active Substance: BENDAMUSTINE HYDROCHLORIDE
     Indication: Diffuse large B-cell lymphoma
     Dosage: UNTIL 20/AUG/2021
     Route: 042
     Dates: start: 20210819, end: 20210820
  3. POLIVY [Suspect]
     Active Substance: POLATUZUMAB VEDOTIN-PIIQ
     Indication: Diffuse large B-cell lymphoma
     Dosage: ALSO RECEIVED 140MG DOSE, UNTIL 20/AUG/2021
     Route: 042
     Dates: start: 20210819, end: 20210819
  4. SULFAMETHOXAZOLE\TRIMETHOPRIM [Concomitant]
     Active Substance: SULFAMETHOXAZOLE\TRIMETHOPRIM
     Indication: Infection prophylaxis
     Route: 048
     Dates: start: 20190509, end: 20211209

REACTIONS (2)
  - Drug eruption [Recovering/Resolving]
  - Renal disorder [Recovering/Resolving]

NARRATIVE: CASE EVENT DATE: 20210823
